FAERS Safety Report 7608840-2 (Version None)
Quarter: 2011Q3

REPORT INFORMATION
  Report Type: 
  Country: None (occurrence: None)
  Receive Date: 20110714
  Receipt Date: 20110711
  Transmission Date: 20111222
  Serious: Yes (Life-Threatening, Other)
  Sender: FDA-Public Use
  Company Number: DE-B.I. PHARMACEUTICALS,INC./RIDGEFIELD-2011-DE-03721DE

PATIENT
  Sex: Male
  Weight: 77 kg

DRUGS (4)
  1. PRADAXA [Suspect]
     Indication: ARRHYTHMIA
     Dosage: 220 MG
     Route: 048
     Dates: start: 20101115, end: 20110516
  2. PRADAXA [Suspect]
     Indication: THROMBOSIS PROPHYLAXIS
  3. PRADAXA [Suspect]
     Indication: ATRIAL FIBRILLATION
  4. MULTAQ [Concomitant]
     Indication: ATRIAL FIBRILLATION
     Route: 048
     Dates: start: 20110217

REACTIONS (4)
  - HAEMORRHAGE [None]
  - MULTIPLE MYELOMA [None]
  - BONE MARROW DISORDER [None]
  - PROTEIN TOTAL ABNORMAL [None]
